FAERS Safety Report 8037451-2 (Version None)
Quarter: 2012Q1

REPORT INFORMATION
  Report Type: 
  Country: None (occurrence: None)
  Receive Date: 20120111
  Receipt Date: 20120109
  Transmission Date: 20120608
  Serious: Yes (Life-Threatening, Hospitalization)
  Sender: FDA-Public Use
  Company Number: FR-PFIZER INC-2011314554

PATIENT
  Age: 60 Year
  Sex: Male

DRUGS (1)
  1. SUTENT [Suspect]
     Indication: RENAL CANCER METASTATIC
     Dosage: UNK
     Route: 048
     Dates: start: 20111101, end: 20111105

REACTIONS (7)
  - HAEMATURIA [None]
  - PLEURAL EFFUSION [None]
  - ANAEMIA [None]
  - LEUKOCYTOSIS [None]
  - DYSPNOEA [None]
  - ASTHENIA [None]
  - PYREXIA [None]
